FAERS Safety Report 9489356 (Version 1)
Quarter: 2013Q3

REPORT INFORMATION
  Report Type: Spontaneous
  Country: US (occurrence: US)
  Receive Date: 20130829
  Receipt Date: 20130829
  Transmission Date: 20140515
  Serious: Yes (Hospitalization)
  Sender: FDA-Public Use
  Company Number: PHHY2013US093329

PATIENT
  Sex: 0

DRUGS (6)
  1. CUBICIN [Suspect]
     Indication: STAPHYLOCOCCAL INFECTION
  2. CUBICIN [Suspect]
     Indication: OFF LABEL USE
  3. VANCOMYCIN [Suspect]
     Indication: STAPHYLOCOCCAL INFECTION
  4. RIFAMPIN CAPSULES USP [Suspect]
     Indication: STAPHYLOCOCCAL INFECTION
  5. GENTAMICIN [Suspect]
     Indication: STAPHYLOCOCCAL BACTERAEMIA
  6. LINEZOLID [Suspect]
     Indication: STAPHYLOCOCCAL INFECTION

REACTIONS (3)
  - Pancreatitis [Unknown]
  - Infectious pleural effusion [Recovering/Resolving]
  - Osteomyelitis [Recovering/Resolving]
